FAERS Safety Report 10151955 (Version 1)
Quarter: 2014Q2

REPORT INFORMATION
  Report Type: Spontaneous
  Country: US (occurrence: US)
  Receive Date: 20140505
  Receipt Date: 20140505
  Transmission Date: 20141212
  Serious: Yes (Other)
  Sender: FDA-Public Use
  Company Number: US-ELI_LILLY_AND_COMPANY-US201404009072

PATIENT
  Sex: Female

DRUGS (4)
  1. FORTEO [Suspect]
     Indication: OSTEOPOROSIS
     Dosage: UNK, QD
     Route: 065
     Dates: start: 2012, end: 201311
  2. VITAMIN D2 [Concomitant]
     Dosage: UNK
  3. CALCIUM [Concomitant]
     Dosage: UNK
  4. VITAMIN D3 [Concomitant]
     Dosage: UNK

REACTIONS (6)
  - Skin discolouration [Unknown]
  - Body height decreased [Unknown]
  - Bone disorder [Unknown]
  - Vitamin D deficiency [Unknown]
  - Hypoaesthesia [Unknown]
  - Intervertebral disc displacement [Unknown]
